FAERS Safety Report 21902211 (Version 1)
Quarter: 2023Q1

REPORT INFORMATION
  Report Type: Spontaneous
  Country: GB (occurrence: GB)
  Receive Date: 20230124
  Receipt Date: 20230124
  Transmission Date: 20230417
  Serious: Yes (Life-Threatening, Other)
  Sender: FDA-Public Use
  Company Number: None

PATIENT
  Age: 40 Year
  Sex: Female

DRUGS (1)
  1. GABAPENTIN [Suspect]
     Active Substance: GABAPENTIN
     Indication: Restless legs syndrome
     Dosage: 1 DOSAGE FORM (1 TAB, 3 TIMES PER DAY. UNSURE OF MG, WAS SEVERAL YEARS AGO ONLY TOOK 1 TABLET)
     Route: 065

REACTIONS (1)
  - Haematemesis [Recovered/Resolved]
